FAERS Safety Report 8010679-3 (Version None)
Quarter: 2011Q4

REPORT INFORMATION
  Report Type: 
  Country: None (occurrence: None)
  Receive Date: 20111228
  Receipt Date: 20111114
  Transmission Date: 20120403
  Serious: Yes (Other)
  Sender: FDA-Public Use
  Company Number: HK-SANOFI-AVENTIS-2011SA073811

PATIENT
  Age: 54 Year
  Sex: Male

DRUGS (5)
  1. HYDROCHLOROTHIAZIDE/OLMESARTAN MEDOXOMIL [Concomitant]
  2. MULTAQ [Suspect]
     Route: 048
     Dates: start: 20100906
  3. CORDARONE [Concomitant]
     Route: 065
     Dates: start: 20091201, end: 20100901
  4. ATORVASTATIN CALCIUM [Concomitant]
  5. DABIGATRAN ETEXILATE [Concomitant]

REACTIONS (1)
  - HYPERTHYROIDISM [None]
